FAERS Safety Report 13829284 (Version 2)
Quarter: 2018Q3

REPORT INFORMATION
  Report Type: Spontaneous
  Country: IT (occurrence: IT)
  Receive Date: 20170803
  Receipt Date: 20180705
  Transmission Date: 20181010
  Serious: Yes (Hospitalization)
  Sender: FDA-Public Use
  Company Number: IT-PFIZER INC-2017323526

PATIENT
  Age: 55 Year
  Sex: Female

DRUGS (1)
  1. TRIATEC (RAMIPRIL) [Suspect]
     Active Substance: RAMIPRIL
     Indication: HYPERTENSION
     Dosage: 2.5 MG, DAILY (320 TABLET IN BLISTER PVC/AL)
     Route: 048
     Dates: start: 20170101, end: 20170605

REACTIONS (2)
  - Palpitations [Unknown]
  - Chest pain [Unknown]

NARRATIVE: CASE EVENT DATE: 20170605
